FAERS Safety Report 9711774 (Version 2)
Quarter: 2013Q4

REPORT INFORMATION
  Report Type: Spontaneous
  Country: US (occurrence: US)
  Receive Date: 20131126
  Receipt Date: 20131126
  Transmission Date: 20140711
  Serious: No
  Sender: FDA-Public Use
  Company Number: US-BRISTOL-MYERS SQUIBB COMPANY-18817577

PATIENT
  Sex: Female

DRUGS (1)
  1. BYDUREON [Suspect]
     Indication: TYPE 2 DIABETES MELLITUS
     Dosage: EXPIRATION DATE:APRIL2014
     Route: 058

REACTIONS (6)
  - Dizziness [Unknown]
  - Injection site extravasation [Recovered/Resolved]
  - Blood glucose decreased [Unknown]
  - Product expiration date issue [Unknown]
  - Drug administration error [Unknown]
  - Hypoaesthesia [Unknown]
